FAERS Safety Report 5152472-5 (Version None)
Quarter: 2006Q4

REPORT INFORMATION
  Report Type: 
  Country: None (occurrence: None)
  Receive Date: 20061116
  Receipt Date: 20061106
  Transmission Date: 20070319
  Serious: Yes (Disabling)
  Sender: FDA-Public Use
  Company Number: US-ELI_LILLY_AND_COMPANY-US200611001021

PATIENT
  Sex: Male

DRUGS (2)
  1. HUMULIN L [Suspect]
     Indication: DIABETES MELLITUS
     Dosage: 56 U, EACH MORNING
     Dates: start: 19660101
  2. HUMULIN R [Suspect]
     Indication: DIABETES MELLITUS
     Dosage: SLIDING SCALE, 3/D
     Dates: start: 19660101

REACTIONS (7)
  - ARTHROPOD BITE [None]
  - BLOOD GLUCOSE INCREASED [None]
  - FATIGUE [None]
  - LYME DISEASE [None]
  - MALAISE [None]
  - RASH [None]
  - VEIN WALL HYPERTROPHY [None]
